FAERS Safety Report 9431019 (Version 3)
Quarter: 2014Q1

REPORT INFORMATION
  Report Type: Spontaneous
  Country: US (occurrence: US)
  Receive Date: 20130730
  Receipt Date: 20140129
  Transmission Date: 20141002
  Serious: No
  Sender: FDA-Public Use
  Company Number: US-PFIZER INC-2013105110

PATIENT
  Age: 65 Year
  Sex: Female
  Weight: 80.73 kg

DRUGS (30)
  1. ENBREL [Suspect]
     Dosage: UNK
  2. IODINE [Suspect]
     Dosage: UNK
  3. PRED-FORTE [Suspect]
     Dosage: UNK
     Route: 047
  4. VERSED [Suspect]
     Dosage: UNK
  5. FLONASE [Suspect]
     Dosage: UNK
  6. POLYMYXIN B SULFATE/TRIMETHOPRIM [Suspect]
     Dosage: UNK
  7. CODEINE [Suspect]
     Dosage: UNK
  8. AMLODIPINE [Concomitant]
     Dosage: 5 MG, UNK
  9. LEUCOVORIN CALCIUM [Concomitant]
     Dosage: 10 MG, UNK
  10. METHOTREXATE [Concomitant]
     Dosage: 2.5 MG, UNK
  11. SIMVASTATIN [Concomitant]
     Dosage: 50 MG, 1X/DAY
  12. PRILOSEC [Concomitant]
     Dosage: 20 MG, 1X/DAY
  13. VITAMIN D [Concomitant]
     Dosage: 1000 UNIT, UNK
  14. CALCIUM 600 + D [Concomitant]
     Dosage: UNK
  15. ASPIRIN [Concomitant]
     Dosage: 81 MG, UNK
  16. FOLIC ACID [Concomitant]
     Dosage: UNK
  17. ALEVE [Concomitant]
     Dosage: UNK
  18. TYLENOL [Concomitant]
     Dosage: 500 UNK, UNK
  19. FISH OIL [Concomitant]
     Dosage: 100 UNK, TWICE A DAY
  20. ENALAPRIL [Concomitant]
     Dosage: 10 MG, ONCE A DAY
  21. SUDAFED [Concomitant]
     Dosage: 30 G, AS NEEDED
  22. HUMIRA [Concomitant]
     Dosage: 40 UNK, UNK
  23. ASA [Concomitant]
     Dosage: 325 UNK, TID
  24. PARAFFIN [Concomitant]
     Dosage: UNK
  25. DEXAMETHASONE [Concomitant]
     Dosage: UNK
  26. DILTIAZEM [Concomitant]
     Dosage: 240 G, UNK
  27. SEAFLOX [Concomitant]
     Dosage: UNK
  28. TICOVAC [Concomitant]
     Dosage: 5 G, WEEKLY
  29. FENTANYL [Concomitant]
     Dosage: 200 G, UNK
  30. BIOTIN [Concomitant]
     Dosage: UNK

REACTIONS (1)
  - Drug hypersensitivity [Not Recovered/Not Resolved]
